FAERS Safety Report 5016964-1 (Version None)
Quarter: 2006Q2

REPORT INFORMATION
  Report Type: 
  Country: None (occurrence: None)
  Receive Date: 20060526
  Receipt Date: 20060523
  Transmission Date: 20061013
  Serious: Yes (Other)
  Sender: FDA-Public Use
  Company Number: 13381348

PATIENT
  Sex: Female

DRUGS (12)
  1. EMSAM [Suspect]
     Indication: MAJOR DEPRESSION
     Dosage: 1 DOSAGE FORM, 1/24 HOUR TD
     Route: 062
     Dates: start: 20060417, end: 20060423
  2. NARDIL [Concomitant]
  3. KLONOPIN [Concomitant]
  4. ADVAIR DISKUS 100/50 [Concomitant]
  5. ALBUTEROL [Concomitant]
  6. HALCION [Concomitant]
  7. NEXIUM [Concomitant]
  8. SINGULAIR [Concomitant]
  9. SULINDAC [Concomitant]
  10. VERAPAMIL [Concomitant]
  11. VICODIN [Concomitant]
  12. ZYPREXA [Concomitant]

REACTIONS (5)
  - ASTHENIA [None]
  - DRY SKIN [None]
  - EOSINOPHIL COUNT INCREASED [None]
  - FEELING HOT [None]
  - HYPERTENSIVE CRISIS [None]
